FAERS Safety Report 7709887-8 (Version None)
Quarter: 2011Q3

REPORT INFORMATION
  Report Type: 
  Country: None (occurrence: None)
  Receive Date: 20110825
  Receipt Date: 20110816
  Transmission Date: 20111222
  Serious: Yes (Hospitalization)
  Sender: FDA-Public Use
  Company Number: US-ACTELION-A-US2011-52309

PATIENT

DRUGS (3)
  1. VENTAVIS [Suspect]
     Indication: PULMONARY ARTERIAL HYPERTENSION
     Dosage: UNK
     Route: 055
     Dates: start: 20110623
  2. ADCIRCA [Concomitant]
  3. OXYGEN [Concomitant]

REACTIONS (4)
  - HEADACHE [None]
  - RENAL FAILURE [None]
  - HEPATIC FAILURE [None]
  - BACTERAEMIA [None]
